FAERS Safety Report 23087250 (Version 1)
Quarter: 2023Q4

REPORT INFORMATION
  Report Type: Spontaneous
  Country: US (occurrence: US)
  Receive Date: 20231020
  Receipt Date: 20231020
  Transmission Date: 20240110
  Serious: No
  Sender: FDA-Public Use
  Company Number: US-GLENMARK PHARMACEUTICALS-2023GMK081141

PATIENT

DRUGS (1)
  1. ESTRADIOL [Suspect]
     Active Substance: ESTRADIOL
     Indication: Vulvovaginal dryness
     Dosage: UNK (TWO TIMES PER WEEK)
     Route: 067
     Dates: start: 20230317

REACTIONS (3)
  - Device difficult to use [Unknown]
  - Vulvovaginal discomfort [Unknown]
  - Product design issue [Unknown]

NARRATIVE: CASE EVENT DATE: 20230320
